FAERS Safety Report 8321294-6 (Version None)
Quarter: 2012Q2

REPORT INFORMATION
  Report Type: 
  Country: None (occurrence: None)
  Receive Date: 20120430
  Receipt Date: 20120423
  Transmission Date: 20120825
  Serious: Yes (Hospitalization)
  Sender: FDA-Public Use
  Company Number: US-BAYER-2012-039315

PATIENT
  Age: 19 Year
  Sex: Female
  Weight: 55.1 kg

DRUGS (7)
  1. CELEBREX [Concomitant]
  2. FERROUS SULFATE TAB [Concomitant]
  3. VICODIN [Concomitant]
  4. TORADOL [Concomitant]
  5. YASMIN [Suspect]
     Dosage: UNK
     Route: 048
     Dates: start: 20060301, end: 20060801
  6. TYLENOL (CAPLET) [Concomitant]
  7. COLACE [Concomitant]

REACTIONS (6)
  - PULMONARY EMBOLISM [None]
  - GENERAL PHYSICAL HEALTH DETERIORATION [None]
  - EMOTIONAL DISTRESS [None]
  - PAIN [None]
  - INJURY [None]
  - ANXIETY [None]
